FAERS Safety Report 5140780-3 (Version None)
Quarter: 2006Q4

REPORT INFORMATION
  Report Type: 
  Country: None (occurrence: None)
  Receive Date: 20061024
  Receipt Date: 20061006
  Transmission Date: 20070319
  Serious: Yes (Death, Life-Threatening, Hospitalization, Other)
  Sender: FDA-Public Use
  Company Number: JP200610001955

PATIENT
  Age: 57 Year
  Sex: Male
  Weight: 51 kg

DRUGS (6)
  1. OLANZAPINE [Suspect]
     Indication: SCHIZOPHRENIA, UNDIFFERENTIATED TYPE
     Dosage: 20 MG, DAILY (1/D), ORAL
     Route: 048
     Dates: start: 20060911, end: 20060918
  2. OLANZAPINE [Suspect]
     Indication: SCHIZOPHRENIA, UNDIFFERENTIATED TYPE
     Dosage: 15 MG, DAILY (1/D), ORAL
     Route: 048
     Dates: start: 20060919, end: 20060926
  3. VALPROATE SODIUM [Concomitant]
  4. SILECE (FLUNITRAZEPAM) [Concomitant]
  5. DORAL [Concomitant]
  6. MAGNESIUM OXIDE (MAGNESIUM OXIDE) [Concomitant]

REACTIONS (3)
  - FALL [None]
  - GASTRIC ULCER [None]
  - SUBDURAL HAEMATOMA [None]
